FAERS Safety Report 9778489 (Version 2)
Quarter: 2013Q4

REPORT INFORMATION
  Report Type: Report from Study
  Country: FR (occurrence: FR)
  Receive Date: 20131223
  Receipt Date: 20131230
  Transmission Date: 20140711
  Serious: Yes (Hospitalization)
  Sender: FDA-Public Use
  Company Number: FR-BAYER-2013-155841

PATIENT
  Age: 68 Year
  Sex: Female
  Weight: 81 kg

DRUGS (22)
  1. RIOCIGUAT (GUANYLATE CYCLASE STIMULATOR) [Suspect]
     Indication: PULMONARY HYPERTENSION
     Dosage: UNK
     Dates: start: 20111012, end: 20111025
  2. RIOCIGUAT (GUANYLATE CYCLASE STIMULATOR) [Suspect]
     Indication: PULMONARY HYPERTENSION
     Dosage: UNK
     Dates: start: 20111026, end: 20111107
  3. RIOCIGUAT (GUANYLATE CYCLASE STIMULATOR) [Suspect]
     Indication: PULMONARY HYPERTENSION
     Dosage: UNK
     Dates: start: 20111108, end: 20111120
  4. RIOCIGUAT (GUANYLATE CYCLASE STIMULATOR) [Suspect]
     Indication: PULMONARY HYPERTENSION
     Dosage: UNK
     Dates: start: 20111121, end: 20111205
  5. RIOCIGUAT (GUANYLATE CYCLASE STIMULATOR) [Suspect]
     Indication: PULMONARY HYPERTENSION
     Dosage: 2.5
     Dates: start: 20111206, end: 20120102
  6. RIOCIGUAT (GUANYLATE CYCLASE STIMULATOR) [Suspect]
     Indication: PULMONARY HYPERTENSION
     Dosage: 2.5
     Dates: start: 20120103, end: 20120403
  7. RIOCIGUAT (GUANYLATE CYCLASE STIMULATOR) [Suspect]
     Indication: PULMONARY HYPERTENSION
     Dosage: 2.5
     Dates: start: 20120404, end: 20120702
  8. RIOCIGUAT (GUANYLATE CYCLASE STIMULATOR) [Suspect]
     Indication: PULMONARY HYPERTENSION
     Dosage: 2.5
     Dates: start: 20120703, end: 20120924
  9. RIOCIGUAT (GUANYLATE CYCLASE STIMULATOR) [Suspect]
     Indication: PULMONARY HYPERTENSION
     Dosage: 2.5
     Dates: start: 20120925, end: 20130107
  10. RIOCIGUAT (GUANYLATE CYCLASE STIMULATOR) [Suspect]
     Indication: PULMONARY HYPERTENSION
     Dosage: 2.5
     Dates: start: 20130108, end: 20130401
  11. RIOCIGUAT (GUANYLATE CYCLASE STIMULATOR) [Suspect]
     Indication: PULMONARY HYPERTENSION
     Dosage: 2.5
     Dates: start: 20130402, end: 20130624
  12. RIOCIGUAT (GUANYLATE CYCLASE STIMULATOR) [Suspect]
     Indication: PULMONARY HYPERTENSION
     Dosage: 2.5
     Dates: start: 20130625, end: 20130926
  13. RIOCIGUAT (GUANYLATE CYCLASE STIMULATOR) [Suspect]
     Indication: PULMONARY HYPERTENSION
     Dosage: 2.5
     Dates: start: 20130926
  14. EXFORGE [Concomitant]
     Dosage: UNK5/80 MG/J
  15. SERESTA [Concomitant]
     Dosage: 25 MG/J
  16. PAROXETINE [Concomitant]
     Dosage: 20 MG/J
  17. ESOMEPRAZOLE [Concomitant]
     Dosage: 40 MG/J
  18. COUMADINE [Concomitant]
     Dosage: 2 TO 3 MG INR DEPENDENT
  19. IDEOS [Concomitant]
     Dosage: 5 TO 7 DAYS
  20. BISOPROLOL [Concomitant]
     Dosage: 7.5 MG/J
  21. CORDARONE [Concomitant]
     Dosage: 200 MG/J
  22. DOLIPRANE [Concomitant]
     Dosage: 500 MG PRN

REACTIONS (2)
  - Atrial tachycardia [Recovered/Resolved]
  - Cardioversion [Recovered/Resolved]
